FAERS Safety Report 8151215-0 (Version None)
Quarter: 2012Q1

REPORT INFORMATION
  Report Type: 
  Country: None (occurrence: None)
  Receive Date: 20120220
  Receipt Date: 20120215
  Transmission Date: 20120608
  Serious: Yes (Death, Other)
  Sender: FDA-Public Use
  Company Number: PHFR2011GB01458

PATIENT
  Sex: Male

DRUGS (5)
  1. ACETAMINOPHEN WITH PROPOXYPHENE HCL TAB [Concomitant]
     Dosage: 325 MG, UNK
  2. TEGRETOL [Suspect]
     Dosage: 400 MG, BID
  3. MELOXICAM [Concomitant]
     Indication: ARTHRALGIA
     Dosage: 7.5 MG, DAILY
     Route: 048
     Dates: start: 20030512
  4. TEGRETOL [Suspect]
     Indication: EPILEPSY
     Dosage: 800 MG, BID
     Route: 048
     Dates: start: 20030708
  5. ACETAMINOPHEN AND CODEINE PHOSPHATE [Suspect]
     Dosage: UNK

REACTIONS (7)
  - LOSS OF CONSCIOUSNESS [None]
  - POISONING [None]
  - INJURY [None]
  - MALAISE [None]
  - CEREBRAL HAEMORRHAGE [None]
  - HYPERSENSITIVITY [None]
  - DYSPNOEA [None]
